FAERS Safety Report 23451373 (Version 3)
Quarter: 2024Q1

REPORT INFORMATION
  Report Type: Report from Study
  Country: US (occurrence: US)
  Receive Date: 20240129
  Receipt Date: 20240220
  Transmission Date: 20240410
  Serious: Yes (Hospitalization, Other)
  Sender: FDA-Public Use
  Company Number: US-UCBSA-2023060138

PATIENT
  Age: 8 Year
  Sex: Female

DRUGS (2)
  1. FINTEPLA [Suspect]
     Active Substance: FENFLURAMINE
     Indication: Focal dyscognitive seizures
     Dosage: 2 MILLILITER, 2X/DAY (BID)
     Dates: start: 20231219, end: 20240202
  2. FINTEPLA [Suspect]
     Active Substance: FENFLURAMINE
     Indication: Off label use

REACTIONS (4)
  - Change in seizure presentation [Not Recovered/Not Resolved]
  - Seizure [Not Recovered/Not Resolved]
  - Off label use [Unknown]
  - Drug ineffective [Unknown]

NARRATIVE: CASE EVENT DATE: 20231201
